FAERS Safety Report 14292714 (Version 5)
Quarter: 2018Q2

REPORT INFORMATION
  Report Type: Report from Study
  Country: US (occurrence: US)
  Receive Date: 20171215
  Receipt Date: 20180523
  Transmission Date: 20180711
  Serious: Yes (Death, Hospitalization)
  Sender: FDA-Public Use
  Company Number: US-ROCHE-2030472

PATIENT
  Age: 77 Year
  Sex: Female
  Weight: 66 kg

DRUGS (5)
  1. ATEZOLIZUMAB. [Suspect]
     Active Substance: ATEZOLIZUMAB
     Indication: NON-SMALL CELL LUNG CANCER METASTATIC
     Dosage: STOPPED
     Route: 042
     Dates: start: 20170725
  2. ATEZOLIZUMAB. [Suspect]
     Active Substance: ATEZOLIZUMAB
     Dosage: STARTED AT TIME: 9:45  AND ENDED AT: 16:35
     Route: 042
     Dates: start: 20171114, end: 20171114
  3. ATEZOLIZUMAB. [Suspect]
     Active Substance: ATEZOLIZUMAB
     Route: 042
     Dates: start: 20170926
  4. ATEZOLIZUMAB. [Suspect]
     Active Substance: ATEZOLIZUMAB
     Dosage: STARTED AT TIME: 16:35  AND ENDED AT: 17:35
     Route: 042
     Dates: start: 20171108, end: 20171108
  5. DARATUMUMAB [Suspect]
     Active Substance: DARATUMUMAB
     Indication: NON-SMALL CELL LUNG CANCER METASTATIC
     Dosage: ON DAYS 1, 8, 15 FOR THE FIRST 2 CYCLES THEN D1 C3 AND D8 C3
     Route: 042
     Dates: start: 20170926

REACTIONS (3)
  - Dyspnoea [Fatal]
  - Fatigue [Not Recovered/Not Resolved]
  - Pneumonia [Not Recovered/Not Resolved]

NARRATIVE: CASE EVENT DATE: 20171115
